FAERS Safety Report 6528068-7 (Version None)
Quarter: 2009Q4

REPORT INFORMATION
  Report Type: 
  Country: None (occurrence: None)
  Receive Date: 20091230
  Receipt Date: 20091124
  Transmission Date: 20100525
  Serious: No
  Sender: FDA-Public Use
  Company Number: 2009EU004199

PATIENT
  Age: 20 Year
  Sex: Female

DRUGS (1)
  1. PROGRAF [Suspect]
     Indication: RENAL TRANSPLANT
     Dosage: 4 MG, BID,

REACTIONS (1)
  - DRUG PRESCRIBING ERROR [None]
